FAERS Safety Report 7081282-7 (Version None)
Quarter: 2010Q4

REPORT INFORMATION
  Report Type: 
  Country: None (occurrence: None)
  Receive Date: 20101102
  Receipt Date: 20101102
  Transmission Date: 20110411
  Serious: Yes (Hospitalization)
  Sender: FDA-Public Use
  Company Number: None

PATIENT
  Age: 64 Year
  Sex: Male
  Weight: 65.5 kg

DRUGS (12)
  1. ABRAXANE [Suspect]
     Indication: PANCREATIC CARCINOMA
     Dosage: SUBJECT HAS NOT STARTED DRUG
  2. VANDETANIB [Suspect]
     Indication: PANCREATIC CARCINOMA
     Dosage: SUBJECT HAS NOT STARTED DRUG
  3. K-DUR [Concomitant]
  4. HUMALOG [Concomitant]
  5. XALSTAN [Concomitant]
  6. TIMOLOL MALEATE [Concomitant]
  7. REGLAN [Concomitant]
  8. PRILOSEC [Concomitant]
  9. PRILOSEC [Concomitant]
  10. ZOFRAN [Concomitant]
  11. VICODIN [Concomitant]
  12. LANTUS [Concomitant]

REACTIONS (5)
  - ABDOMINAL DISTENSION [None]
  - HYPERBILIRUBINAEMIA [None]
  - HYPONATRAEMIA [None]
  - JUGULAR VEIN THROMBOSIS [None]
  - MALIGNANT NEOPLASM PROGRESSION [None]
